FAERS Safety Report 15991023 (Version 1)
Quarter: 2019Q1

REPORT INFORMATION
  Report Type: Spontaneous
  Country: IT (occurrence: IT)
  Receive Date: 20190221
  Receipt Date: 20190221
  Transmission Date: 20190418
  Serious: Yes (Hospitalization)
  Sender: FDA-Public Use
  Company Number: IT-PFIZER INC-2019077126

PATIENT
  Age: 58 Year
  Sex: Female
  Weight: 102 kg

DRUGS (3)
  1. DOXORUBICIN HCL [Suspect]
     Active Substance: DOXORUBICIN HYDROCHLORIDE
     Indication: BREAST CANCER STAGE II
     Dosage: 90 MG, CYCLIC
     Route: 042
     Dates: start: 20190111, end: 20190111
  2. CYCLOPHOSPHAMIDE. [Suspect]
     Active Substance: CYCLOPHOSPHAMIDE
     Indication: BREAST CANCER STAGE II
     Dosage: 900 MG, CYCLIC
     Route: 042
     Dates: start: 20190111, end: 20190111
  3. EN [Concomitant]
     Active Substance: DELORAZEPAM
     Indication: ANXIETY
     Dosage: 3 GTT, UNK
     Route: 048

REACTIONS (6)
  - Abdominal pain [Unknown]
  - Vomiting [Unknown]
  - Thrombocytopenia [Unknown]
  - Pyrexia [Unknown]
  - Cholecystitis acute [Unknown]
  - Neutropenia [Unknown]

NARRATIVE: CASE EVENT DATE: 20190120
